FAERS Safety Report 4308447-9 (Version None)
Quarter: 2004Q1

REPORT INFORMATION
  Report Type: 
  Country: None (occurrence: None)
  Receive Date: 20040301
  Receipt Date: 20031117
  Transmission Date: 20041129
  Serious: Yes (Hospitalization)
  Sender: FDA-Public Use
  Company Number: US-ROCHE-352193

PATIENT
  Age: 61 Year
  Sex: Male
  Weight: 117.9 kg

DRUGS (6)
  1. PEGASYS [Suspect]
     Indication: HEPATITIS
     Route: 058
     Dates: start: 20031013, end: 20031117
  2. PEGASYS [Suspect]
     Route: 058
  3. COPEGUS [Suspect]
     Indication: HEPATITIS
     Dosage: 3 IN THE AM AND 2 IN THE PM.
     Route: 048
     Dates: start: 20031013
  4. LITHIUM [Suspect]
     Indication: DRUG USE FOR UNKNOWN INDICATION
     Route: 065
  5. GLUCOPHAGE [Concomitant]
     Route: 048
     Dates: start: 19970615
  6. BLOOD PRESSURE MEDICATION NOS [Concomitant]
     Dosage: STRENGHT WAS REPORTED AS 250
     Route: 048
     Dates: start: 19930615

REACTIONS (11)
  - BIPOLAR DISORDER [None]
  - DEHYDRATION [None]
  - HAEMORRHAGE [None]
  - RECTAL HAEMORRHAGE [None]
  - RED BLOOD CELL COUNT ABNORMAL [None]
  - RED BLOOD CELL COUNT DECREASED [None]
  - SELF INJURIOUS BEHAVIOUR [None]
  - SUICIDAL IDEATION [None]
  - SUICIDE ATTEMPT [None]
  - THERAPEUTIC AGENT TOXICITY [None]
  - WHITE BLOOD CELL COUNT DECREASED [None]
